FAERS Safety Report 4320256-3 (Version None)
Quarter: 2004Q1

REPORT INFORMATION
  Report Type: 
  Country: None (occurrence: None)
  Receive Date: 20040317
  Receipt Date: 20040305
  Transmission Date: 20041129
  Serious: Yes (Hospitalization)
  Sender: FDA-Public Use
  Company Number: 2004SE00577

PATIENT
  Age: 47 Year
  Sex: Female
  Weight: 78 kg

DRUGS (6)
  1. BLOPRESS [Suspect]
     Indication: HYPERTENSION
     Dosage: 8 MG PO
     Route: 048
     Dates: end: 20040112
  2. BLOPRESS [Suspect]
     Indication: HYPERTENSION
     Dosage: 4 MG PO
     Route: 048
     Dates: start: 20040113, end: 20040127
  3. PAROXETINE HCL [Concomitant]
  4. LORAZEPAM [Concomitant]
  5. CLONAZEPAM [Concomitant]
  6. FLUNITRAZEPAM [Concomitant]

REACTIONS (9)
  - BLOOD PRESSURE FLUCTUATION [None]
  - DEPRESSED LEVEL OF CONSCIOUSNESS [None]
  - DYSARTHRIA [None]
  - DYSSTASIA [None]
  - HEADACHE [None]
  - HEMIPLEGIA [None]
  - HYPOTENSION [None]
  - LOSS OF CONSCIOUSNESS [None]
  - SYNCOPE [None]
